FAERS Safety Report 9304528 (Version 1)
Quarter: 2013Q2

REPORT INFORMATION
  Report Type: Report from Study
  Country: GB (occurrence: GB)
  Receive Date: 20130523
  Receipt Date: 20130523
  Transmission Date: 20140414
  Serious: Yes (Hospitalization)
  Sender: FDA-Public Use
  Company Number: GB-ROCHE-1227148

PATIENT
  Sex: Female
  Weight: 63 kg

DRUGS (12)
  1. RITUXIMAB [Suspect]
     Indication: RHEUMATOID ARTHRITIS
     Route: 065
     Dates: start: 20050927
  2. PARACETAMOL [Concomitant]
     Dosage: 2 TABLETS
     Route: 048
  3. SALBUTAMOL [Concomitant]
     Dosage: 1-2 PUFFS
     Route: 050
  4. DOSULEPIN [Concomitant]
     Dosage: 1 TABLET
     Route: 048
  5. FERROUS GLUCONATE [Concomitant]
     Dosage: 1 TABLET
     Route: 048
  6. LETROZOLE [Concomitant]
     Dosage: 1 TABLET
     Route: 048
  7. PREDNISOLONE [Concomitant]
     Dosage: 3 TABLET
     Route: 048
  8. OMEPRAZOLE [Concomitant]
     Dosage: 1 CAPSULE
     Route: 048
  9. BECLOMETASONE DIPROPIONATE [Concomitant]
     Dosage: 2 PUFFS
     Route: 050
  10. CALCEOS [Concomitant]
     Dosage: 1 TABLET
     Route: 048
  11. SALMETEROL [Concomitant]
     Dosage: 2 BLISTER
     Route: 065
  12. HUMALOG MIX [Concomitant]
     Route: 058

REACTIONS (7)
  - Sepsis [Unknown]
  - Rheumatoid arthritis [Unknown]
  - Hiatus hernia, obstructive [Unknown]
  - Diverticulum intestinal [Unknown]
  - Renal failure acute [Unknown]
  - Device related infection [Unknown]
  - Arthritis bacterial [Unknown]
